FAERS Safety Report 23733648 (Version 1)
Quarter: 2024Q2

REPORT INFORMATION
  Report Type: Report from Study
  Country: AU (occurrence: AU)
  Receive Date: 20240411
  Receipt Date: 20240411
  Transmission Date: 20240716
  Serious: Yes (Other)
  Sender: FDA-Public Use
  Company Number: AU-CELLTRION INC.-2024AU008272

PATIENT

DRUGS (1)
  1. INFLIXIMAB [Suspect]
     Active Substance: INFLIXIMAB
     Indication: Colitis ulcerative
     Dosage: 120 MG EVERY TWO WEEKS (FORTNIGHTLY)
     Dates: start: 20231117

REACTIONS (3)
  - Colitis ulcerative [Recovered/Resolved]
  - Therapy interrupted [Recovered/Resolved]
  - Product supply issue [Recovered/Resolved]
